FAERS Safety Report 8507848-2 (Version None)
Quarter: 2012Q3

REPORT INFORMATION
  Report Type: 
  Country: None (occurrence: None)
  Receive Date: 20120709
  Receipt Date: 20120709
  Transmission Date: 20120928
  Serious: Yes (Life-Threatening, Hospitalization, Disabling)
  Sender: FDA-Public Use
  Company Number: None

PATIENT
  Age: 52 Year
  Sex: Female
  Weight: 58.0604 kg

DRUGS (1)
  1. TOBRAMYCIN SULFATE [Suspect]
     Indication: CYSTIC FIBROSIS
     Dosage: 300 MG, TWICE DAILY
     Dates: start: 20120501, end: 20120517

REACTIONS (5)
  - COUGH [None]
  - INSOMNIA [None]
  - IMPAIRED WORK ABILITY [None]
  - MUSCLE STRAIN [None]
  - SKIN DISCOLOURATION [None]
